FAERS Safety Report 4782628-2 (Version None)
Quarter: 2005Q3

REPORT INFORMATION
  Report Type: 
  Country: None (occurrence: None)
  Receive Date: 20050929
  Receipt Date: 20050510
  Transmission Date: 20060218
  Serious: No
  Sender: FDA-Public Use
  Company Number: 404589

PATIENT
  Age: 60 Year
  Sex: Male

DRUGS (8)
  1. COREG [Suspect]
     Dosage: 12.5MG TWICE PER DAY
     Route: 048
     Dates: start: 20010101
  2. LANOXIN [Concomitant]
  3. LASIX [Concomitant]
  4. FUROSEMIDE [Concomitant]
  5. MULTIVITAMIN [Concomitant]
  6. ASPIRIN [Concomitant]
     Route: 065
  7. ZELNORM [Concomitant]
  8. ANTI-CHOLESTEROL MEDICATION [Concomitant]
     Route: 065

REACTIONS (1)
  - VISION BLURRED [None]
